FAERS Safety Report 4526278-1 (Version None)
Quarter: 2004Q4

REPORT INFORMATION
  Report Type: 
  Country: None (occurrence: None)
  Receive Date: 20041214
  Receipt Date: 20040422
  Transmission Date: 20050328
  Serious: Yes (Hospitalization)
  Sender: FDA-Public Use
  Company Number: JP-SOLVAY-00304001150

PATIENT
  Age: 65 Year
  Sex: Male
  Weight: 46.3 kg

DRUGS (8)
  1. NOVOPEN [Concomitant]
     Indication: DIABETES MELLITUS
     Dosage: DAILY DOSE: UNK. FREQUENCY:UNKNOWN
     Route: 065
  2. CREON [Suspect]
     Indication: PANCREATIC CARCINOMA
     Dosage: DAILY DOSE: 3 G. FREQUENCY:UNKNOWN
     Route: 048
     Dates: start: 19970918, end: 19980429
  3. CREON [Suspect]
     Dosage: DAILY DOSE: 3 G. FREQUENCY:UNKNOWN
     Route: 048
     Dates: start: 19980706, end: 19980916
  4. INSULIN [Concomitant]
     Indication: DIABETES MELLITUS
     Dosage: DAILY DOSE:  UNKNOWN
     Route: 065
  5. LAC B [Concomitant]
     Indication: INTESTINAL FUNCTIONAL DISORDER
     Dosage: DAILY DOSE: 9 GRAM(S)
     Route: 048
     Dates: start: 19970929, end: 19970929
  6. VOLTAREN [Concomitant]
     Indication: CHOLANGITIS
     Dosage: DAILY DOSE: 25 MILLIGRAM(S)
     Route: 065
     Dates: start: 19971014, end: 19971014
  7. PURSENNID [Concomitant]
     Indication: CONSTIPATION
     Dosage: DAILY DOSE: 24 MILLIGRAM(S)
     Route: 048
     Dates: start: 19980105, end: 19980109
  8. PL [Concomitant]
     Indication: NASOPHARYNGITIS
     Dosage: DAILY DOSE: 9 GRAM(S)
     Route: 048
     Dates: start: 19980105, end: 19980108

REACTIONS (14)
  - ABDOMINAL PAIN [None]
  - ASPARTATE AMINOTRANSFERASE INCREASED [None]
  - BACTERIURIA [None]
  - BLOOD ALKALINE PHOSPHATASE INCREASED [None]
  - BLOOD BILIRUBIN INCREASED [None]
  - BLOOD LACTATE DEHYDROGENASE INCREASED [None]
  - BLOOD POTASSIUM INCREASED [None]
  - CHOLANGITIS [None]
  - GAMMA-GLUTAMYLTRANSFERASE INCREASED [None]
  - HAEMOGLOBIN DECREASED [None]
  - ILEUS [None]
  - NASOPHARYNGITIS [None]
  - POSTOPERATIVE ADHESION [None]
  - WHITE BLOOD CELL COUNT INCREASED [None]
